FAERS Safety Report 4414046-0 (Version None)
Quarter: 2004Q3

REPORT INFORMATION
  Report Type: 
  Country: None (occurrence: None)
  Receive Date: 20040803
  Receipt Date: 20040723
  Transmission Date: 20050211
  Serious: Yes (Other)
  Sender: FDA-Public Use
  Company Number: GB-GLAXOSMITHKLINE-B0340419A

PATIENT
  Sex: Female

DRUGS (1)
  1. SEROXAT [Suspect]
     Dosage: 20MG PER DAY
     Route: 048

REACTIONS (3)
  - AGGRESSION [None]
  - AMNESIA [None]
  - DRUG WITHDRAWAL SYNDROME [None]
